FAERS Safety Report 10766780 (Version 2)
Quarter: 2015Q1

REPORT INFORMATION
  Report Type: Spontaneous
  Country: US (occurrence: US)
  Receive Date: 20150205
  Receipt Date: 20150219
  Transmission Date: 20150721
  Serious: Yes (Other)
  Sender: FDA-Public Use
  Company Number: US-PFIZER INC-2015033161

PATIENT
  Age: 19 Year
  Sex: Female

DRUGS (1)
  1. CHAPSTICK MIXSTIX [Suspect]
     Active Substance: COSMETICS
     Indication: LIP DRY
     Dosage: SWIPE ACROSS HER EACH LIP, 4X/DAY
     Dates: start: 20141227, end: 20141229

REACTIONS (12)
  - Lip pruritus [Unknown]
  - Urticaria [Unknown]
  - Oral mucosal erythema [Unknown]
  - Scab [Unknown]
  - Dermatitis contact [Unknown]
  - Hypersensitivity [Unknown]
  - Wound secretion [Unknown]
  - Oral disorder [Unknown]
  - Swelling face [Unknown]
  - Lip swelling [Unknown]
  - Lip pain [Unknown]
  - Paraesthesia oral [Unknown]

NARRATIVE: CASE EVENT DATE: 20141229
